FAERS Safety Report 8218245-1 (Version None)
Quarter: 2012Q1

REPORT INFORMATION
  Report Type: 
  Country: None (occurrence: None)
  Receive Date: 20120305
  Receipt Date: 20111215
  Transmission Date: 20120608
  Serious: No
  Sender: FDA-Public Use
  Company Number: 1000026338

PATIENT
  Sex: Male

DRUGS (1)
  1. DALIRESP [Suspect]

REACTIONS (1)
  - ABNORMAL DREAMS [None]
